FAERS Safety Report 10349695 (Version 1)
Quarter: 2014Q3

REPORT INFORMATION
  Report Type: Spontaneous
  Country: FR (occurrence: None)
  Receive Date: 20140728
  Receipt Date: 20140728
  Transmission Date: 20150326
  Serious: Yes (Other)
  Sender: FDA-Public Use
  Company Number: 2014-FR-008858

PATIENT
  Age: 64 Year
  Sex: Female

DRUGS (5)
  1. CYCLOPHOSPHAMIDE (CYCLOPHOSPHAMIDE) [Concomitant]
     Active Substance: CYCLOPHOSPHAMIDE
  2. ASPARAGINASE [Suspect]
     Active Substance: ASPARAGINASE
     Indication: ACUTE LYMPHOCYTIC LEUKAEMIA
     Dosage: 6000 IU/M2, DAYS 8,10,12,20,22,24,26,28
     Dates: start: 20130121
  3. VINCRISTINE (VINCRISTINE) [Concomitant]
     Active Substance: VINCRISTINE
  4. PREDNISONE (PREDNISONE) [Concomitant]
     Active Substance: PREDNISONE
  5. DAUNORUBICIN (DANORUBICIN) [Concomitant]

REACTIONS (3)
  - Febrile bone marrow aplasia [None]
  - Hepatotoxicity [None]
  - Coagulopathy [None]

NARRATIVE: CASE EVENT DATE: 20130223
